FAERS Safety Report 6726223-4 (Version None)
Quarter: 2010Q2

REPORT INFORMATION
  Report Type: 
  Country: None (occurrence: None)
  Receive Date: 20100514
  Receipt Date: 20100511
  Transmission Date: 20101027
  Serious: Yes (Death, Other)
  Sender: FDA-Public Use
  Company Number: PHHY2010US30770

PATIENT
  Age: 57 Year
  Sex: Male

DRUGS (5)
  1. CYCLOSPORINE [Suspect]
     Indication: RENAL TRANSPLANT
  2. MYCOPHENOLATE MOFETIL [Suspect]
     Indication: RENAL TRANSPLANT
  3. PREDNISONE [Suspect]
     Indication: RENAL TRANSPLANT
  4. LEUPROLIDE ACETATE [Concomitant]
     Route: 030
  5. TAXOTERE [Concomitant]

REACTIONS (14)
  - ABDOMINAL PAIN [None]
  - ANAESTHESIA [None]
  - CEREBRAL HAEMATOMA [None]
  - COLECTOMY [None]
  - CRANIOTOMY [None]
  - HAEMATEMESIS [None]
  - LARGE INTESTINE PERFORATION [None]
  - METASTASES TO CENTRAL NERVOUS SYSTEM [None]
  - METASTASES TO LYMPH NODES [None]
  - METASTASES TO STOMACH [None]
  - MUSCULAR WEAKNESS [None]
  - NEUROPATHY PERIPHERAL [None]
  - PARALYSIS [None]
  - PROSTATE CANCER [None]
